FAERS Safety Report 7682995-6 (Version None)
Quarter: 2011Q3

REPORT INFORMATION
  Report Type: 
  Country: None (occurrence: None)
  Receive Date: 20110815
  Receipt Date: 20110811
  Transmission Date: 20111222
  Serious: Yes (Hospitalization, Other)
  Sender: FDA-Public Use
  Company Number: FR-PFIZER INC-2011184484

PATIENT
  Age: 49 Year
  Sex: Female

DRUGS (1)
  1. EFFEXOR XR [Suspect]
     Indication: MAJOR DEPRESSION
     Dosage: 4 DF PER DAY
     Route: 048

REACTIONS (5)
  - MANIA [None]
  - URINARY RETENTION [None]
  - CONVULSION [None]
  - RENAL FAILURE ACUTE [None]
  - HYPERTENSIVE CRISIS [None]
